FAERS Safety Report 4924994-0 (Version None)
Quarter: 2006Q1

REPORT INFORMATION
  Report Type: 
  Country: None (occurrence: None)
  Receive Date: 20060222
  Receipt Date: 20060210
  Transmission Date: 20060701
  Serious: Yes (Other)
  Sender: FDA-Public Use
  Company Number: 13503

PATIENT
  Age: 57 Year
  Sex: Male

DRUGS (1)
  1. PAMIDRONATE DISODIUM [Suspect]
     Dosage: 90 MG ONCE IV
     Route: 042

REACTIONS (10)
  - BLOOD PARATHYROID HORMONE INCREASED [None]
  - DRUG TOXICITY [None]
  - ELECTROCARDIOGRAM QT CORRECTED INTERVAL PROLONGED [None]
  - HYPOCALCAEMIA [None]
  - HYPOMAGNESAEMIA [None]
  - NEPHROPATHY [None]
  - PARAESTHESIA [None]
  - RENAL IMPAIRMENT [None]
  - TETANY [None]
  - TUBULOINTERSTITIAL NEPHRITIS [None]
